FAERS Safety Report 18386406 (Version 6)
Quarter: 2023Q2

REPORT INFORMATION
  Report Type: Spontaneous
  Country: US (occurrence: US)
  Receive Date: 20201015
  Receipt Date: 20230615
  Transmission Date: 20230721
  Serious: Yes (Other)
  Sender: FDA-Public Use
  Company Number: US-JNJFOC-20201012035

PATIENT
  Age: 52 Year
  Sex: Female

DRUGS (15)
  1. ELMIRON [Suspect]
     Active Substance: PENTOSAN POLYSULFATE SODIUM
     Indication: Cystitis interstitial
     Route: 048
     Dates: start: 20080801
  2. ELMIRON [Suspect]
     Active Substance: PENTOSAN POLYSULFATE SODIUM
     Route: 048
     Dates: start: 20181221
  3. ELMIRON [Suspect]
     Active Substance: PENTOSAN POLYSULFATE SODIUM
     Route: 048
     Dates: start: 20190917, end: 20191201
  4. PROGESTERONE [Concomitant]
     Active Substance: PROGESTERONE
     Indication: Hormone replacement therapy
     Route: 065
     Dates: start: 2000
  5. ESTRADIOL [Concomitant]
     Active Substance: ESTRADIOL
     Indication: Hormone replacement therapy
     Route: 065
     Dates: start: 2000
  6. PRINIVIL [Concomitant]
     Active Substance: LISINOPRIL
     Indication: Hypertension
     Route: 065
     Dates: start: 201404
  7. ZESTRIL [Concomitant]
     Active Substance: LISINOPRIL
     Indication: Hypertension
     Route: 065
     Dates: start: 201404
  8. OXYCODONE [Concomitant]
     Active Substance: OXYCODONE
     Indication: Fibromyalgia
     Route: 065
     Dates: start: 201006, end: 2016
  9. OXYCODONE [Concomitant]
     Active Substance: OXYCODONE
     Indication: Cystitis interstitial
  10. ZANAFLEX [Concomitant]
     Active Substance: TIZANIDINE HYDROCHLORIDE
     Indication: Muscle spasms
     Route: 065
     Dates: start: 201111, end: 201607
  11. CLONAZEPAM [Concomitant]
     Active Substance: CLONAZEPAM
     Indication: Seizure
     Route: 065
     Dates: start: 201407, end: 2016
  12. CLONAZEPAM [Concomitant]
     Active Substance: CLONAZEPAM
     Indication: Fibromyalgia
  13. OMEPRAZOLE [Concomitant]
     Active Substance: OMEPRAZOLE
     Indication: Gastrooesophageal reflux disease
     Route: 065
     Dates: start: 201404
  14. HYDROCHLOROTHIAZIDE [Concomitant]
     Active Substance: HYDROCHLOROTHIAZIDE
     Indication: Hypertension
     Route: 065
     Dates: start: 2009, end: 2016
  15. BUPROPION [Concomitant]
     Active Substance: BUPROPION
     Indication: Depression
     Dates: start: 2020

REACTIONS (2)
  - Dry age-related macular degeneration [Unknown]
  - Maculopathy [Unknown]

NARRATIVE: CASE EVENT DATE: 20200701
